FAERS Safety Report 22125113 (Version 2)
Quarter: 2023Q2

REPORT INFORMATION
  Report Type: Report from Study
  Country: US (occurrence: US)
  Receive Date: 20230322
  Receipt Date: 20230413
  Transmission Date: 20230722
  Serious: No
  Sender: FDA-Public Use
  Company Number: US-SA-SAC20230320000403

PATIENT
  Sex: Female

DRUGS (1)
  1. DUPIXENT [Suspect]
     Active Substance: DUPILUMAB
     Indication: Asthma
     Dosage: 300 MG FREQUENCY- OTHER
     Route: 058

REACTIONS (4)
  - Injection site pain [Unknown]
  - Ocular discomfort [Unknown]
  - Injection site discomfort [Unknown]
  - Eczema [Unknown]
